FAERS Safety Report 10200313 (Version 2)
Quarter: 2014Q2

REPORT INFORMATION
  Report Type: Spontaneous
  Country: JP (occurrence: JP)
  Receive Date: 20140527
  Receipt Date: 20140602
  Transmission Date: 20141212
  Serious: Yes (Hospitalization)
  Sender: FDA-Public Use
  Company Number: PHHY2014JP063632

PATIENT
  Age: 80 Year
  Sex: Female

DRUGS (1)
  1. EXELON PATCH [Suspect]
     Dosage: 9 MG, DAILY
     Route: 062

REACTIONS (4)
  - Femur fracture [Unknown]
  - Memory impairment [Unknown]
  - Neurological examination abnormal [Not Recovered/Not Resolved]
  - Drug ineffective [Unknown]
